FAERS Safety Report 18533715 (Version 1)
Quarter: 2020Q4

REPORT INFORMATION
  Report Type: Spontaneous
  Country: US (occurrence: US)
  Receive Date: 20201121
  Receipt Date: 20201121
  Transmission Date: 20210114
  Serious: Yes (Disabling)
  Sender: FDA-Public Use
  Company Number: None

PATIENT
  Age: 22 Year
  Sex: Female
  Weight: 65.25 kg

DRUGS (3)
  1. ELURYNG [Suspect]
     Active Substance: ETHINYL ESTRADIOL\ETONOGESTREL
     Indication: CONTRACEPTION
     Dosage: ?          QUANTITY:1 VAGINAL RING;OTHER FREQUENCY:3 WEEKS IN;?
     Route: 067
     Dates: start: 20200316, end: 20201106
  2. ADVIL [Concomitant]
     Active Substance: IBUPROFEN
  3. TUMS [Concomitant]
     Active Substance: CALCIUM CARBONATE

REACTIONS (9)
  - Product substitution issue [None]
  - Pain [None]
  - Economic problem [None]
  - Palpitations [None]
  - Anxiety [None]
  - Malaise [None]
  - Gastrointestinal disorder [None]
  - Loss of consciousness [None]
  - Quality of life decreased [None]
